FAERS Safety Report 15792322 (Version 3)
Quarter: 2019Q2

REPORT INFORMATION
  Report Type: Report from Study
  Country: JP (occurrence: JP)
  Receive Date: 20190107
  Receipt Date: 20190412
  Transmission Date: 20190711
  Serious: Yes (Other)
  Sender: FDA-Public Use
  Company Number: JP-CONCORDIA PHARMACEUTICALS INC.-GSH201901-000023

PATIENT
  Age: 45 Year
  Sex: Female
  Weight: 52 kg

DRUGS (15)
  1. PREDNISOLONE. [Suspect]
     Active Substance: PREDNISOLONE
     Indication: CUTANEOUS LUPUS ERYTHEMATOSUS
     Route: 048
  2. PERSANTIN [Concomitant]
     Active Substance: DIPYRIDAMOLE
     Indication: CUTANEOUS LUPUS ERYTHEMATOSUS
     Dates: end: 20180830
  3. SELBEX [Concomitant]
     Active Substance: TEPRENONE
     Indication: PRODUCT USED FOR UNKNOWN INDICATION
  4. BONALON [Concomitant]
     Active Substance: ALENDRONATE SODIUM
     Indication: PROPHYLAXIS
  5. PLAQUENIL [Suspect]
     Active Substance: HYDROXYCHLOROQUINE SULFATE
     Dosage: 200 MG/DAY AND 400 MG/DAY, ALTERNATELY
     Route: 048
     Dates: start: 20180607
  6. TAKEPRON [Concomitant]
     Active Substance: LANSOPRAZOLE
     Indication: PROPHYLAXIS
  7. ONEALFA [Concomitant]
     Active Substance: ALFACALCIDOL
     Indication: PROPHYLAXIS
  8. PLAQUENIL [Suspect]
     Active Substance: HYDROXYCHLOROQUINE SULFATE
     Indication: CUTANEOUS LUPUS ERYTHEMATOSUS
     Route: 048
     Dates: start: 20171006, end: 20171109
  9. PLAQUENIL [Suspect]
     Active Substance: HYDROXYCHLOROQUINE SULFATE
     Route: 048
     Dates: start: 20180222, end: 20180606
  10. ONEALFA [Concomitant]
     Active Substance: ALFACALCIDOL
     Indication: INVESTIGATION
  11. BONALON [Concomitant]
     Active Substance: ALENDRONATE SODIUM
     Indication: INVESTIGATION
  12. LOXONIN [Concomitant]
     Active Substance: LOXOPROFEN SODIUM
     Indication: PRODUCT USED FOR UNKNOWN INDICATION
  13. EPADEL T [Concomitant]
     Indication: CUTANEOUS LUPUS ERYTHEMATOSUS
  14. PLAQUENIL [Suspect]
     Active Substance: HYDROXYCHLOROQUINE SULFATE
     Dosage: 200 MG/DAY AND 400 MG/DAY, ALTERNATELY
     Route: 048
     Dates: start: 20180607
  15. TAKEPRON [Concomitant]
     Active Substance: LANSOPRAZOLE
     Indication: INVESTIGATION

REACTIONS (1)
  - Chorioretinopathy [Recovered/Resolved]

NARRATIVE: CASE EVENT DATE: 20171019
